FAERS Safety Report 10474162 (Version 1)
Quarter: 2014Q3

REPORT INFORMATION
  Report Type: Spontaneous
  Country: JP (occurrence: JP)
  Receive Date: 20140924
  Receipt Date: 20140924
  Transmission Date: 20150326
  Serious: Yes (Other)
  Sender: FDA-Public Use
  Company Number: JP-PFIZER INC-2014260360

PATIENT
  Sex: Female

DRUGS (2)
  1. LYRICA [Suspect]
     Active Substance: PREGABALIN
     Dosage: 375MG/DAY (75MG AT MORNING, 150MG AT EVENING AND 150MG BEFORE GOING TO BED
  2. LYRICA [Suspect]
     Active Substance: PREGABALIN
     Dosage: 150 MG, DAILY
     Dates: start: 201408

REACTIONS (8)
  - Alanine aminotransferase increased [Unknown]
  - Aspartate aminotransferase increased [Unknown]
  - Pain in extremity [Unknown]
  - Blood cholinesterase increased [Unknown]
  - Hepatic steatosis [Unknown]
  - Hepatitis [Unknown]
  - Drug effect incomplete [Unknown]
  - Somnolence [Unknown]

NARRATIVE: CASE EVENT DATE: 20140825
